FAERS Safety Report 22033626 (Version 1)
Quarter: 2023Q1

REPORT INFORMATION
  Report Type: Spontaneous
  Country: CN (occurrence: CN)
  Receive Date: 20230224
  Receipt Date: 20230224
  Transmission Date: 20230418
  Serious: Yes (Other)
  Sender: FDA-Public Use
  Company Number: CN-009507513-2302CHN006045

PATIENT
  Age: 75 Year
  Sex: Female

DRUGS (3)
  1. JANUVIA [Suspect]
     Active Substance: SITAGLIPTIN PHOSPHATE
     Indication: Diabetes mellitus management
     Dosage: 100MG, QD. INDICATION: MEDICAL CONDITION NEEDS
     Route: 048
     Dates: start: 20230129, end: 20230204
  2. IRBESARTAN [Concomitant]
     Active Substance: IRBESARTAN
     Indication: General symptom
     Dosage: 150MG, QD. INDICATION: MEDICAL CONDITION NEEDS
     Route: 048
     Dates: start: 20210414, end: 20230214
  3. NIFEDIPINE [Concomitant]
     Active Substance: NIFEDIPINE
     Indication: General symptom
     Dosage: 30MG QD, INDICATION: MEDICAL CONDITION NEEDS
     Route: 048
     Dates: start: 20210414, end: 20230214

REACTIONS (3)
  - Diabetes mellitus inadequate control [Recovering/Resolving]
  - Abdominal pain upper [Recovering/Resolving]
  - Constipation [Recovering/Resolving]

NARRATIVE: CASE EVENT DATE: 20230131
